FAERS Safety Report 6578983-3 (Version None)
Quarter: 2010Q1

REPORT INFORMATION
  Report Type: 
  Country: None (occurrence: None)
  Receive Date: 20100212
  Receipt Date: 20100201
  Transmission Date: 20100710
  Serious: Yes (Other)
  Sender: FDA-Public Use
  Company Number: FR-JNJFOC-20100200921

PATIENT
  Age: 58 Year
  Sex: Female

DRUGS (9)
  1. REMICADE [Suspect]
     Indication: RHEUMATOID ARTHRITIS
     Route: 042
  2. ENBREL [Suspect]
     Indication: RHEUMATOID ARTHRITIS
     Route: 058
  3. HUMIRA [Suspect]
     Indication: RHEUMATOID ARTHRITIS
     Route: 058
  4. MABTHERA [Suspect]
     Indication: RHEUMATOID ARTHRITIS
     Dosage: 2 INFUSIONS
     Route: 042
  5. ARAVA [Suspect]
     Indication: RHEUMATOID ARTHRITIS
     Route: 048
  6. METHOTREXATE [Suspect]
     Indication: RHEUMATOID ARTHRITIS
  7. CORTANCYL [Concomitant]
     Indication: RHEUMATOID ARTHRITIS
     Dosage: PROGRESSIVE TAPERING DOSE, RECIEVED LONG TERM
     Route: 048
  8. CARTREX [Concomitant]
     Indication: RHEUMATOID ARTHRITIS
     Dosage: RECEIVED LONG TERM
     Route: 048
  9. PARACETAMOL [Concomitant]
     Indication: RHEUMATOID ARTHRITIS
     Dosage: RECEIVED LONG TERM

REACTIONS (3)
  - LEUKOPENIA [None]
  - NEUTROPENIA [None]
  - PRIMARY MEDIASTINAL LARGE B-CELL LYMPHOMA RECURRENT [None]
